FAERS Safety Report 25691675 (Version 1)
Quarter: 2025Q3

REPORT INFORMATION
  Report Type: Spontaneous
  Country: JP (occurrence: JP)
  Receive Date: 20250818
  Receipt Date: 20250818
  Transmission Date: 20251020
  Serious: Yes (Other)
  Sender: MERCK SHARP & DOHME LLC
  Company Number: JP-009507513-2319796

PATIENT
  Age: 63 Year
  Sex: Male

DRUGS (3)
  1. KEYTRUDA [Suspect]
     Active Substance: PEMBROLIZUMAB
     Indication: Adenosquamous cell lung cancer stage III
  2. CISPLATIN [Suspect]
     Active Substance: CISPLATIN
     Indication: Adenosquamous cell lung cancer stage III
  3. GEMCITABINE HYDROCHLORIDE [Suspect]
     Active Substance: GEMCITABINE HYDROCHLORIDE
     Indication: Adenosquamous cell lung cancer stage III

REACTIONS (3)
  - Lung operation [Unknown]
  - Therapy partial responder [Unknown]
  - Drug ineffective [Unknown]
